FAERS Safety Report 7977555-3 (Version None)
Quarter: 2011Q4

REPORT INFORMATION
  Report Type: 
  Country: None (occurrence: None)
  Receive Date: 20111214
  Receipt Date: 20111122
  Transmission Date: 20120403
  Serious: Yes (Other)
  Sender: FDA-Public Use
  Company Number: US-AMGEN-USASP2011061881

PATIENT
  Age: 63 Year
  Sex: Female

DRUGS (2)
  1. ENBREL [Suspect]
     Indication: PSORIASIS
     Dosage: UNK
  2. METHOTREXATE [Concomitant]
     Dosage: UNK

REACTIONS (4)
  - HYPOAESTHESIA [None]
  - PARALYSIS [None]
  - DEMYELINATION [None]
  - MULTIPLE SCLEROSIS [None]
